FAERS Safety Report 10287138 (Version 3)
Quarter: 2014Q3

REPORT INFORMATION
  Report Type: Spontaneous
  Country: US (occurrence: US)
  Receive Date: 20140709
  Receipt Date: 20140808
  Transmission Date: 20150326
  Serious: Yes (Other)
  Sender: FDA-Public Use
  Company Number: US-LUNDBECK-DKLU1101350

PATIENT
  Sex: Female

DRUGS (2)
  1. SABRIL [Suspect]
     Active Substance: VIGABATRIN
     Indication: INFANTILE SPASMS
     Dates: start: 20091116, end: 20140621
  2. SABRIL [Suspect]
     Active Substance: VIGABATRIN
     Route: 048
     Dates: start: 20130716, end: 20140701

REACTIONS (2)
  - Dyskinesia [Recovered/Resolved]
  - Nuclear magnetic resonance imaging brain abnormal [Unknown]

NARRATIVE: CASE EVENT DATE: 2013
